FAERS Safety Report 9289466 (Version 1)
Quarter: 2013Q2

REPORT INFORMATION
  Report Type: Spontaneous
  Country: US (occurrence: US)
  Receive Date: 20130514
  Receipt Date: 20130514
  Transmission Date: 20140414
  Serious: Yes (Other)
  Sender: FDA-Public Use
  Company Number: US-B.I. PHARMACEUTICALS,INC./RIDGEFIELD-2013-BI-12770BP

PATIENT
  Age: 60 Year
  Sex: Female
  Weight: 87 kg

DRUGS (3)
  1. SPIRIVA [Suspect]
     Indication: ASTHMA
     Dosage: 18 MCG
     Route: 055
     Dates: start: 2007
  2. ADVAIR [Concomitant]
     Indication: ASTHMA
     Route: 055
  3. PREDNISONE [Concomitant]
     Indication: ASTHMA
     Dosage: 20 MG
     Route: 048

REACTIONS (7)
  - Breast cancer [Not Recovered/Not Resolved]
  - Skin cancer [Not Recovered/Not Resolved]
  - Breast cellulitis [Recovered/Resolved]
  - Breast cancer [Recovered/Resolved]
  - Eyelid cyst [Recovered/Resolved]
  - Breast cancer [Not Recovered/Not Resolved]
  - Breast cellulitis [Recovered/Resolved]
